FAERS Safety Report 4567222-0 (Version None)
Quarter: 2005Q1

REPORT INFORMATION
  Report Type: 
  Country: None (occurrence: None)
  Receive Date: 20050201
  Receipt Date: 20040326
  Transmission Date: 20050727
  Serious: Yes (Other)
  Sender: FDA-Public Use
  Company Number: GB-BRISTOL-MYERS SQUIBB COMPANY-12543807

PATIENT
  Age: 28 Year
  Sex: Female
  Weight: 58 kg

DRUGS (4)
  1. REYATAZ [Suspect]
     Indication: HIV INFECTION
     Dosage: AFTER 3-4 WEEKS, 400 MG DAILY WITHOUT RITONAVIR, THEN DISCONTINUED APPROXIMATELY 2 WEEKS LATER
     Route: 048
     Dates: start: 20040305
  2. DIDANOSINE [Concomitant]
     Indication: HIV INFECTION
     Route: 048
     Dates: start: 20040116
  3. RITONAVIR [Concomitant]
     Indication: HIV INFECTION
     Route: 048
     Dates: start: 20040305, end: 20040326
  4. ZIDOVUDINE [Concomitant]
     Indication: HIV INFECTION
     Route: 048
     Dates: start: 20040116

REACTIONS (2)
  - ABORTION SPONTANEOUS [None]
  - PREGNANCY [None]
